FAERS Safety Report 10229833 (Version 1)
Quarter: 2014Q2

REPORT INFORMATION
  Report Type: Spontaneous
  Country: US (occurrence: None)
  Receive Date: 20140610
  Receipt Date: 20140610
  Transmission Date: 20141212
  Serious: Yes (Disabling)
  Sender: FDA-Public Use
  Company Number: None

PATIENT
  Age: 50 Year
  Sex: Male
  Weight: 86.18 kg

DRUGS (4)
  1. ATORVASTATIN [Suspect]
     Indication: BLOOD CHOLESTEROL INCREASED
     Dosage: 30 1 PER NIGHT BY MOUTH
     Route: 048
     Dates: start: 20140411, end: 20140509
  2. DIVALPROEX [Concomitant]
  3. OLANZAPINE [Concomitant]
  4. EQUATE COMPLETE MULTIVITAMIN [Concomitant]

REACTIONS (6)
  - Fatigue [None]
  - Decreased appetite [None]
  - Diarrhoea [None]
  - Memory impairment [None]
  - Pain [None]
  - Heart rate increased [None]
